FAERS Safety Report 11184868 (Version 1)
Quarter: 2015Q2

REPORT INFORMATION
  Report Type: Spontaneous
  Country: US (occurrence: US)
  Receive Date: 20150612
  Receipt Date: 20150612
  Transmission Date: 20150821
  Serious: Yes (Other)
  Sender: FDA-Public Use
  Company Number: US-ASTRAZENECA-2015SE55682

PATIENT
  Age: 62 Year
  Sex: Female
  Weight: 74.8 kg

DRUGS (6)
  1. NEXIUM [Suspect]
     Active Substance: ESOMEPRAZOLE MAGNESIUM
     Indication: GASTROOESOPHAGEAL REFLUX DISEASE
     Route: 048
     Dates: start: 201505
  2. ZANTAC [Concomitant]
     Active Substance: RANITIDINE HYDROCHLORIDE
     Route: 065
  3. NEXIUM [Suspect]
     Active Substance: ESOMEPRAZOLE MAGNESIUM
     Indication: GASTROOESOPHAGEAL REFLUX DISEASE
     Route: 048
     Dates: start: 2005, end: 201505
  4. RANITIDINE [Concomitant]
     Active Substance: RANITIDINE\RANITIDINE HYDROCHLORIDE
     Route: 065
  5. NEXIUM [Suspect]
     Active Substance: ESOMEPRAZOLE MAGNESIUM
     Indication: GASTROOESOPHAGEAL REFLUX DISEASE
     Route: 048
     Dates: start: 2000, end: 2005
  6. SANVOSTATIN [Concomitant]
     Indication: NEOPLASM MALIGNANT
     Route: 030

REACTIONS (17)
  - Glucose tolerance impaired [Unknown]
  - Abdominal distension [Not Recovered/Not Resolved]
  - Abdominal discomfort [Not Recovered/Not Resolved]
  - Small intestine carcinoma [Unknown]
  - Barrett^s oesophagus [Unknown]
  - Short-bowel syndrome [Not Recovered/Not Resolved]
  - Nausea [Unknown]
  - Eructation [Not Recovered/Not Resolved]
  - Diarrhoea haemorrhagic [Unknown]
  - Hiatus hernia [Unknown]
  - Weight increased [Not Recovered/Not Resolved]
  - Anaemia [Unknown]
  - Frequent bowel movements [Unknown]
  - Flatulence [Not Recovered/Not Resolved]
  - Pain [Unknown]
  - Therapy cessation [Unknown]
  - Off label use [Unknown]

NARRATIVE: CASE EVENT DATE: 2004
